FAERS Safety Report 5712606-8 (Version None)
Quarter: 2008Q2

REPORT INFORMATION
  Report Type: 
  Country: None (occurrence: None)
  Receive Date: 20080422
  Receipt Date: 20080416
  Transmission Date: 20081010
  Serious: Yes (Other)
  Sender: FDA-Public Use
  Company Number: US-ASTRAZENECA-2008UW05498

PATIENT
  Age: 73 Year
  Sex: Female
  Weight: 86.6 kg

DRUGS (3)
  1. ATACAND HCT [Suspect]
     Indication: HYPERTENSION
     Dosage: 32/12.5MG
     Route: 048
     Dates: start: 20030101, end: 20080306
  2. CLONIDINE HCL [Concomitant]
  3. ASPIRIN [Concomitant]

REACTIONS (4)
  - ALOPECIA [None]
  - ANTINUCLEAR ANTIBODY INCREASED [None]
  - HYPOKINESIA [None]
  - MYALGIA [None]
